FAERS Safety Report 7064782-5 (Version None)
Quarter: 2010Q4

REPORT INFORMATION
  Report Type: 
  Country: None (occurrence: None)
  Receive Date: 20101027
  Receipt Date: 19760326
  Transmission Date: 20110411
  Serious: Yes (Death, Life-Threatening, Hospitalization)
  Sender: FDA-Public Use
  Company Number: DE-ROCHE-760306136001

PATIENT
  Age: 88 Year
  Sex: Female

DRUGS (1)
  1. VALIUM [Suspect]
     Indication: SEDATION
     Route: 048

REACTIONS (2)
  - DEATH [None]
  - SEDATION [None]
